FAERS Safety Report 10228935 (Version 2)
Quarter: 2014Q3

REPORT INFORMATION
  Report Type: Spontaneous
  Country: US (occurrence: US)
  Receive Date: 20140610
  Receipt Date: 20140825
  Transmission Date: 20150326
  Serious: Yes (Other)
  Sender: FDA-Public Use
  Company Number: US-GLAXOSMITHKLINE-A1075696A

PATIENT
  Sex: Male

DRUGS (17)
  1. LIDOCAINE. [Concomitant]
     Active Substance: LIDOCAINE
  2. EPINEPHRINE. [Concomitant]
     Active Substance: EPINEPHRINE
  3. DOCUSATE [Concomitant]
     Active Substance: DOCUSATE
  4. ALBUTEROL INHALER [Concomitant]
     Active Substance: ALBUTEROL
  5. LORAZEPAM. [Concomitant]
     Active Substance: LORAZEPAM
  6. SUPPLEMENT [Concomitant]
     Active Substance: UNSPECIFIED INGREDIENT
  7. ZEMPLAR [Concomitant]
     Active Substance: PARICALCITOL
  8. SODIUM CHLORIDE. [Concomitant]
     Active Substance: SODIUM CHLORIDE
  9. CINACALCET HYDROCHLORIDE [Concomitant]
     Active Substance: CINACALCET HYDROCHLORIDE
  10. OMEPRAZOLE. [Concomitant]
     Active Substance: OMEPRAZOLE
  11. LISINOPRIL. [Concomitant]
     Active Substance: LISINOPRIL
  12. CHLORHEXIDINE [Concomitant]
     Active Substance: CHLORHEXIDINE
     Route: 061
  13. CRESTOR [Concomitant]
     Active Substance: ROSUVASTATIN CALCIUM
  14. METOPROLOL [Concomitant]
     Active Substance: METOPROLOL
  15. ADVAIR HFA [Suspect]
     Active Substance: FLUTICASONE PROPIONATE\SALMETEROL XINAFOATE
     Indication: ASTHMA
     Dosage: 1PUFF TWICE PER DAY
     Route: 055
  16. TYLENOL [Concomitant]
     Active Substance: ACETAMINOPHEN
  17. IRON [Concomitant]
     Active Substance: IRON

REACTIONS (1)
  - Dialysis [Unknown]
